FAERS Safety Report 20434352 (Version 1)
Quarter: 2022Q1

REPORT INFORMATION
  Report Type: Report from Study
  Country: MX (occurrence: MX)
  Receive Date: 20220206
  Receipt Date: 20220206
  Transmission Date: 20220423
  Serious: Yes (Disabling, Other)
  Sender: FDA-Public Use
  Company Number: MX-NOVARTISPH-NVSC2022MX025594

PATIENT
  Sex: Male
  Weight: 117 kg

DRUGS (5)
  1. HYDROCHLOROTHIAZIDE\VALSARTAN [Suspect]
     Active Substance: HYDROCHLOROTHIAZIDE\VALSARTAN
     Indication: Hypertension
     Dosage: 1 DOSAGE FORM, (320/12.5 MG) QD
     Route: 048
     Dates: start: 201211
  2. HYDROCHLOROTHIAZIDE\VALSARTAN [Suspect]
     Active Substance: HYDROCHLOROTHIAZIDE\VALSARTAN
     Dosage: 1 DOSAGE FORM, (160/12.5 MG) BID
     Route: 048
     Dates: start: 202108
  3. LANTUS [Concomitant]
     Active Substance: INSULIN GLARGINE
     Indication: Diabetes mellitus
     Dosage: 1 DOSAGE FORM, QD
     Route: 030
     Dates: start: 201211
  4. GALACTUS [Concomitant]
     Indication: Diabetes mellitus
     Dosage: 1 DOSAGE FORM, (100 U/ML) QD
     Route: 058
     Dates: start: 2021
  5. METFORMIN [Concomitant]
     Active Substance: METFORMIN HYDROCHLORIDE
     Indication: Product used for unknown indication
     Dosage: 6 DOSAGE FORM, QD
     Route: 048
     Dates: start: 201211

REACTIONS (7)
  - Intervertebral disc disorder [Unknown]
  - Cataract [Recovering/Resolving]
  - Cardiac failure [Unknown]
  - Fluid retention [Unknown]
  - Sarcopenia [Not Recovered/Not Resolved]
  - Obesity [Unknown]
  - Product use issue [Not Recovered/Not Resolved]

NARRATIVE: CASE EVENT DATE: 20180101
